FAERS Safety Report 6557180-1 (Version None)
Quarter: 2010Q1

REPORT INFORMATION
  Report Type: 
  Country: None (occurrence: None)
  Receive Date: 20100127
  Receipt Date: 20100127
  Transmission Date: 20100710
  Serious: No
  Sender: FDA-Public Use
  Company Number: None

PATIENT
  Sex: Female
  Weight: 14.8 kg

DRUGS (8)
  1. PEG-L- ASPARAGINASE (PEFASPARGASE, ONCOSPAR) [Suspect]
     Dosage: 3175 IU
     Dates: start: 20090807
  2. THIOGUANINE [Suspect]
     Dosage: 560 MG
     Dates: start: 20090806
  3. VINCRISTINE SULFATE [Suspect]
     Dosage: 4.9 MG
     Dates: start: 20090814
  4. CYCLOPHOSPHAMIDE [Suspect]
     Dosage: 640 MG
     Dates: start: 20090724
  5. CYTARABINE [Suspect]
     Dosage: 400 MG
     Dates: start: 20090803
  6. DEXAMETHASONE [Suspect]
     Dosage: 84 MG
     Dates: start: 20090716
  7. DOXORUBICIN HCL [Suspect]
     Dosage: 48 MG
     Dates: start: 20090710
  8. METHOTREXATE [Suspect]
     Dosage: 36 MG
     Dates: start: 20090731

REACTIONS (3)
  - HIGH DENSITY LIPOPROTEIN INCREASED [None]
  - HYPERTRIGLYCERIDAEMIA [None]
  - LOW DENSITY LIPOPROTEIN INCREASED [None]
